FAERS Safety Report 15020018 (Version 1)
Quarter: 2018Q2

REPORT INFORMATION
  Report Type: Spontaneous
  Country: DE (occurrence: DE)
  Receive Date: 20180618
  Receipt Date: 20180618
  Transmission Date: 20180711
  Serious: Yes (Hospitalization)
  Sender: FDA-Public Use
  Company Number: DE-TEVA-2018-DE-908607

PATIENT
  Age: 79 Year
  Sex: Female
  Weight: 77 kg

DRUGS (13)
  1. VIGANTOLETTEN 1000I.E. [Concomitant]
     Dosage: 1000 IE, 1-0-0-0, TABLETTEN
     Route: 048
  2. KALINOR - RETARD P [Concomitant]
     Dosage: NEED
     Route: 048
  3. ASS 100-1A PHARMA [Concomitant]
     Dosage: 1-0-0-0
     Route: 048
  4. AMPHO-MORONAL [Concomitant]
     Active Substance: AMPHOTERICIN B
     Dosage: 1-1-1-1, SUSPENSION
     Route: 048
  5. PREDNISOLONE. [Suspect]
     Active Substance: PREDNISOLONE
     Dosage: 1-0-0-0
     Route: 048
  6. PRAMIPEXOL AAA 0,35MG [Concomitant]
     Dosage: 0.5-0-0.5-0
     Route: 048
  7. BISOPROLOL ABZ 5MG [Concomitant]
     Dosage: 1-0-0-0
     Route: 048
  8. TORASEMID [Concomitant]
     Active Substance: TORSEMIDE
     Dosage: 0.5-0-0-0
     Route: 048
  9. PANTOPRAZOL AAA 40MG [Concomitant]
     Dosage: 1-0-0-0
     Route: 048
  10. PREGABADOR [Concomitant]
     Active Substance: PREGABALIN
     Dosage: 0-0-1-0
     Route: 048
  11. ARANESP 30MIKROGRAMM [Concomitant]
     Dosage: 1-0-0-0
     Route: 058
  12. AZATHIOPRIN AL 50 [Suspect]
     Active Substance: AZATHIOPRINE
     Route: 065
  13. CANDECOR COMP. 8MG/12,5MG [Concomitant]
     Dosage: 8|12.5 MG, 1-0-0-0
     Route: 048

REACTIONS (3)
  - Orthostatic intolerance [Unknown]
  - Confusional state [Unknown]
  - Dizziness [Unknown]
